FAERS Safety Report 9903250 (Version 1)
Quarter: 2014Q1

REPORT INFORMATION
  Report Type: Spontaneous
  Country: US (occurrence: US)
  Receive Date: 20140217
  Receipt Date: 20140217
  Transmission Date: 20141002
  Serious: No
  Sender: FDA-Public Use
  Company Number: US-ASTRAZENECA-2013SE76879

PATIENT
  Age: 54 Year
  Sex: Female
  Weight: 90.7 kg

DRUGS (7)
  1. ATENOLOL [Suspect]
     Indication: BLOOD PRESSURE ABNORMAL
     Route: 048
  2. SEROQUEL XR [Suspect]
     Indication: DEPRESSION
     Route: 048
     Dates: start: 2013, end: 2013
  3. ASPIRIN [Concomitant]
     Dosage: 325 MGS DAILY
     Route: 048
  4. LASARTAN [Concomitant]
     Indication: BLOOD PRESSURE ABNORMAL
     Dosage: 50 MGS DAILY
     Route: 048
  5. ATIVAN [Concomitant]
     Route: 048
  6. SYNTHROID [Concomitant]
     Indication: THYROID DISORDER
     Dosage: 25 MGS DAILY
     Route: 048
  7. CYMBALTA [Concomitant]
     Indication: DEPRESSION
     Dosage: 60 MGS DAILY
     Route: 048

REACTIONS (5)
  - Hypersomnia [Unknown]
  - Formication [Unknown]
  - Feeling abnormal [Unknown]
  - Hypoaesthesia [Unknown]
  - Fatigue [Unknown]
